FAERS Safety Report 18663357 (Version 1)
Quarter: 2020Q4

REPORT INFORMATION
  Report Type: Spontaneous
  Country: DE (occurrence: DE)
  Receive Date: 20201224
  Receipt Date: 20201224
  Transmission Date: 20210114
  Serious: Yes (Hospitalization)
  Sender: FDA-Public Use
  Company Number: DE-TEVA-2020-DE-1860803

PATIENT
  Age: 79 Year
  Sex: Male

DRUGS (3)
  1. APIXABAN [Concomitant]
     Active Substance: APIXABAN
     Dosage: 10 MILLIGRAM DAILY; 5 MG, 1-0-1-0
     Route: 048
  2. TAMSULOSIN [Concomitant]
     Active Substance: TAMSULOSIN
     Dosage: .4 MILLIGRAM DAILY; 0.4 MG, 1-0-0-0
     Route: 048
  3. METOPROLOL. [Suspect]
     Active Substance: METOPROLOL
     Dosage: 47.5 MILLIGRAM DAILY; 23.75 MG, 1-0-1-0
     Route: 048

REACTIONS (5)
  - Atrial fibrillation [Unknown]
  - Bradycardia [Unknown]
  - Palpitations [Unknown]
  - Tachycardia [Unknown]
  - Arrhythmia [Unknown]
